FAERS Safety Report 9807027 (Version 1)
Quarter: 2014Q1

REPORT INFORMATION
  Report Type: Spontaneous
  Country: US (occurrence: US)
  Receive Date: 20140110
  Receipt Date: 20140110
  Transmission Date: 20141002
  Serious: Yes (Death, Other)
  Sender: FDA-Public Use
  Company Number: US-ASTRAZENECA-2014SE01190

PATIENT
  Age: 28 Year
  Sex: Male

DRUGS (10)
  1. LISINOPRIL [Suspect]
     Route: 048
  2. CLONAZEPAM [Suspect]
     Route: 048
  3. POTASSIUM CHLORIDE [Suspect]
  4. CLONIDINE [Suspect]
     Route: 048
  5. COCAINE [Suspect]
     Route: 048
  6. ETHANOL [Suspect]
     Route: 048
  7. FLECAINIDE [Suspect]
     Route: 048
  8. FLUOXETINE [Suspect]
     Route: 048
  9. FUROSEMIDE [Suspect]
  10. LORAZEPAM [Suspect]
     Route: 048

REACTIONS (6)
  - Toxicity to various agents [Fatal]
  - Completed suicide [Fatal]
  - Cardio-respiratory arrest [Fatal]
  - Status epilepticus [Recovered/Resolved]
  - Arrhythmia [Fatal]
  - Cardiogenic shock [Fatal]
